FAERS Safety Report 12968825 (Version 2)
Quarter: 2016Q4

REPORT INFORMATION
  Report Type: Spontaneous
  Country: BR (occurrence: BR)
  Receive Date: 20161123
  Receipt Date: 20161130
  Transmission Date: 20170207
  Serious: Yes (Hospitalization)
  Sender: FDA-Public Use
  Company Number: BR-PFIZER INC-2015409191

PATIENT
  Sex: Female

DRUGS (1)
  1. FRONTAL SL [Suspect]
     Active Substance: ALPRAZOLAM
     Dosage: UNK
     Route: 060
     Dates: start: 201509, end: 20151120

REACTIONS (4)
  - Panic disorder [Not Recovered/Not Resolved]
  - Nervousness [Not Recovered/Not Resolved]
  - Generalised anxiety disorder [Unknown]
  - Feeling abnormal [Unknown]

NARRATIVE: CASE EVENT DATE: 201511
